FAERS Safety Report 8021223-9 (Version None)
Quarter: 2011Q4

REPORT INFORMATION
  Report Type: 
  Country: None (occurrence: None)
  Receive Date: 20111207
  Receipt Date: 20110909
  Transmission Date: 20120403
  Serious: Yes (Disabling)
  Sender: FDA-Public Use
  Company Number: 2011029749

PATIENT
  Sex: Female
  Weight: 71.7 kg

DRUGS (15)
  1. TRAZODONE HCL [Concomitant]
  2. PROMETRIUM [Concomitant]
  3. TRICOR [Concomitant]
  4. HIZENTRA [Suspect]
     Indication: HYPOGAMMAGLOBULINAEMIA
     Dosage: (8 G 1X/WEEK, 40 ML WEEKLY SUBCUTANEOUS)
     Route: 058
  5. HIZENTRA [Suspect]
     Indication: IMMUNODEFICIENCY COMMON VARIABLE
     Dosage: (8 G 1X/WEEK, 40 ML WEEKLY SUBCUTANEOUS)
     Route: 058
  6. HIZENTRA [Suspect]
     Indication: SELECTIVE IGA IMMUNODEFICIENCY
     Dosage: (8 G 1X/WEEK, 40 ML WEEKLY SUBCUTANEOUS)
     Route: 058
  7. METFORMIN HCL [Concomitant]
  8. LOVAZA [Concomitant]
  9. CRESTOR [Concomitant]
  10. LEXAPRO [Concomitant]
  11. ESTRASORB [Concomitant]
  12. VAGIFEM [Concomitant]
  13. NEXIUM [Concomitant]
  14. SYNTHROID [Concomitant]
  15. CALCIUM CARBONATE [Concomitant]

REACTIONS (14)
  - ANAEMIA [None]
  - PAIN [None]
  - FATIGUE [None]
  - CHILLS [None]
  - HYPERTENSION [None]
  - INJECTION SITE STREAKING [None]
  - LYMPH NODE PAIN [None]
  - CHEST DISCOMFORT [None]
  - SYNOVIAL CYST [None]
  - INFUSION SITE DISCOLOURATION [None]
  - FEELING ABNORMAL [None]
  - INFUSION SITE ERYTHEMA [None]
  - NIGHT SWEATS [None]
  - PYREXIA [None]
